FAERS Safety Report 21093743 (Version 1)
Quarter: 2022Q3

REPORT INFORMATION
  Report Type: Spontaneous
  Country: FR (occurrence: None)
  Receive Date: 20220718
  Receipt Date: 20220718
  Transmission Date: 20221027
  Serious: Yes (Hospitalization)
  Sender: FDA-Public Use
  Company Number: None

PATIENT
  Age: 54 Year
  Sex: Female
  Weight: 59 kg

DRUGS (5)
  1. CEFTRIAXONE SODIUM [Suspect]
     Active Substance: CEFTRIAXONE SODIUM
     Indication: Influenza like illness
     Route: 065
     Dates: start: 20220410, end: 20220410
  2. TAMIFLU [Suspect]
     Active Substance: OSELTAMIVIR PHOSPHATE
     Indication: Influenza
     Route: 065
     Dates: start: 20220410, end: 20220412
  3. RACECADOTRIL [Suspect]
     Active Substance: RACECADOTRIL
     Indication: Diarrhoea
     Route: 065
     Dates: start: 20220410, end: 20220412
  4. MORPHINE [Suspect]
     Active Substance: MORPHINE
     Indication: Pain
     Route: 065
     Dates: start: 20220410, end: 20220410
  5. AMIKACIN [Suspect]
     Active Substance: AMIKACIN
     Indication: Influenza like illness
     Route: 065
     Dates: start: 20220410, end: 20220410

REACTIONS (1)
  - Immune thrombocytopenia [Recovered/Resolved]

NARRATIVE: CASE EVENT DATE: 20220412
